FAERS Safety Report 5846919-6 (Version None)
Quarter: 2008Q3

REPORT INFORMATION
  Report Type: 
  Country: None (occurrence: None)
  Receive Date: 20080815
  Receipt Date: 20080807
  Transmission Date: 20090109
  Serious: Yes (Death)
  Sender: FDA-Public Use
  Company Number: GB-JNJFOC-20080802587

PATIENT
  Age: 5 Year
  Sex: Female

DRUGS (2)
  1. ACETAMINOPHEN [Suspect]
     Route: 048
  2. ACETAMINOPHEN [Suspect]
     Indication: DRUG USE FOR UNKNOWN INDICATION
     Dosage: ALLEGED MAXIMUM DOSE NOT REPORTED
     Route: 048

REACTIONS (2)
  - HEPATIC NECROSIS [None]
  - WRONG DRUG ADMINISTERED [None]
